FAERS Safety Report 14253176 (Version 1)
Quarter: 2017Q4

REPORT INFORMATION
  Report Type: Spontaneous
  Country: CA (occurrence: CA)
  Receive Date: 20171206
  Receipt Date: 20171206
  Transmission Date: 20180321
  Serious: Yes (Life-Threatening, Hospitalization, Other)
  Sender: FDA-Public Use
  Company Number: CA-AUROBINDO-AUR-APL-2017-44168

PATIENT
  Age: 70 Year
  Sex: Female
  Weight: 76.19 kg

DRUGS (1)
  1. AURO-CEFUROXIME TABLETS [Suspect]
     Active Substance: CEFUROXIME
     Indication: OTITIS MEDIA
     Dosage: 250 MG, TWO TIMES A DAY
     Route: 048

REACTIONS (7)
  - Dyspnoea [Recovered/Resolved]
  - Speech disorder [Recovered/Resolved]
  - Eye swelling [Recovered/Resolved]
  - Lip swelling [Recovered/Resolved]
  - Syncope [Recovered/Resolved]
  - Pruritus [Recovered/Resolved]
  - Skin discolouration [Recovered/Resolved]
